FAERS Safety Report 7134296-2 (Version None)
Quarter: 2010Q4

REPORT INFORMATION
  Report Type: 
  Country: None (occurrence: None)
  Receive Date: 20101203
  Receipt Date: 20101124
  Transmission Date: 20110411
  Serious: Yes (Death, Hospitalization)
  Sender: FDA-Public Use
  Company Number: AU-AMGEN-QUU434217

PATIENT

DRUGS (3)
  1. NEUPOGEN [Suspect]
     Indication: AGRANULOCYTOSIS
     Dosage: 300 A?G, QD
     Route: 058
     Dates: start: 20100810, end: 20100815
  2. FLOXACILLIN SODIUM [Suspect]
     Dosage: UNK
     Dates: start: 20100818, end: 20100825
  3. AUGMENTIN '125' [Concomitant]
     Dosage: UNK UNK, UNK
     Dates: start: 20100809, end: 20100816

REACTIONS (5)
  - HEPATIC FAILURE [None]
  - MALAISE [None]
  - MUSCULOSKELETAL PAIN [None]
  - MYALGIA [None]
  - SPLENIC INFARCTION [None]
